FAERS Safety Report 7706349-9 (Version None)
Quarter: 2011Q3

REPORT INFORMATION
  Report Type: 
  Country: None (occurrence: None)
  Receive Date: 20110818
  Receipt Date: 20110808
  Transmission Date: 20111222
  Serious: Yes (Other)
  Sender: FDA-Public Use
  Company Number: TCI2011A04385

PATIENT
  Age: 63 Year
  Sex: Male

DRUGS (2)
  1. AMARYL [Concomitant]
  2. ACTOS [Suspect]
     Indication: DIABETES MELLITUS
     Dosage: 30 MG (30 MG, 1 D) PER ORAL
     Route: 048
     Dates: start: 20051001, end: 20110701

REACTIONS (2)
  - HAEMATURIA [None]
  - BLADDER CANCER [None]
